FAERS Safety Report 4890652-4 (Version None)
Quarter: 2006Q1

REPORT INFORMATION
  Report Type: 
  Country: None (occurrence: None)
  Receive Date: 20060125
  Receipt Date: 20050922
  Transmission Date: 20060701
  Serious: No
  Sender: FDA-Public Use
  Company Number: US-BRISTOL-MYERS SQUIBB COMPANY-13119987

PATIENT
  Age: 48 Year
  Sex: Female

DRUGS (1)
  1. CARDIOLITE [Suspect]
     Indication: CARDIAC PHARMACOLOGIC STRESS TEST
     Dates: start: 20050916

REACTIONS (2)
  - RASH [None]
  - URTICARIA [None]
